FAERS Safety Report 4562427-7 (Version None)
Quarter: 2005Q1

REPORT INFORMATION
  Report Type: 
  Country: None (occurrence: None)
  Receive Date: 20050121
  Receipt Date: 20050106
  Transmission Date: 20050727
  Serious: Yes (Hospitalization)
  Sender: FDA-Public Use
  Company Number: WAES 0410GBR00075

PATIENT
  Age: 70 Year
  Sex: Male

DRUGS (10)
  1. VIOXX [Suspect]
     Indication: NEOPLASM PROPHYLAXIS
     Dosage: 25MG DAILY, PO
     Route: 048
     Dates: start: 20040824, end: 20041001
  2. ASPIRIN [Concomitant]
  3. ATORVASTATIN CALCIUM [Concomitant]
  4. ESCITALOPRAM OXALATE [Concomitant]
  5. FUROSEMIDE [Concomitant]
  6. INSULIN, BIPHASIC ISOPHANE (INJECTION) [Concomitant]
  7. METFORMIN HCL [Concomitant]
  8. ORLISTAT [Concomitant]
  9. QUINAPRIL HCL [Concomitant]
  10. SILDENAFIL CITRATE [Concomitant]

REACTIONS (13)
  - BLOOD GLUCOSE FLUCTUATION [None]
  - CARDIAC FAILURE CONGESTIVE [None]
  - CARDIAC MURMUR [None]
  - CREPITATIONS [None]
  - DILATATION ATRIAL [None]
  - DILATATION VENTRICULAR [None]
  - DYSPNOEA EXERTIONAL [None]
  - DYSPNOEA PAROXYSMAL NOCTURNAL [None]
  - HYPOKINESIA [None]
  - MITRAL VALVE INCOMPETENCE [None]
  - ORTHOPNOEA [None]
  - TRICUSPID VALVE INCOMPETENCE [None]
  - VENTRICULAR DYSFUNCTION [None]
